FAERS Safety Report 7198447-6 (Version None)
Quarter: 2010Q4

REPORT INFORMATION
  Report Type: 
  Country: None (occurrence: None)
  Receive Date: 20101213
  Receipt Date: 20101130
  Transmission Date: 20110411
  Serious: Yes (Other)
  Sender: FDA-Public Use
  Company Number: 2010EU006475

PATIENT
  Age: 52 Year
  Sex: Female

DRUGS (4)
  1. PROTOPIC [Suspect]
     Indication: LICHEN PLANUS
     Dosage: TOPICAL
     Route: 061
  2. CORTICOSTEROIDS () [Suspect]
     Indication: LICHEN PLANUS
     Dosage: TOPICAL; ORAL
  3. CYCLOSPORINE [Suspect]
     Indication: LICHEN PLANUS
  4. CHLOROQUINE PHOSPHATE [Suspect]
     Indication: LICHEN PLANUS

REACTIONS (4)
  - DISEASE RECURRENCE [None]
  - LICHEN PLANUS [None]
  - OFF LABEL USE [None]
  - THERAPEUTIC RESPONSE DECREASED [None]
